FAERS Safety Report 9848385 (Version 1)
Quarter: 2013Q4

REPORT INFORMATION
  Report Type: Spontaneous
  Country: US (occurrence: None)
  Receive Date: 20131224
  Receipt Date: 20131224
  Transmission Date: 20140711
  Serious: Yes (Death)
  Sender: FDA-Public Use
  Company Number: PHEH2012US024710

PATIENT
  Age: 85 Year
  Sex: Female
  Weight: 66 kg

DRUGS (7)
  1. EXJADE [Suspect]
     Indication: MYELODYSPLASTIC SYNDROME
     Route: 048
     Dates: start: 201205
  2. PROZAC (FLUOXETINE HYDROCHLORIDE) [Concomitant]
  3. ALLEGRA [Concomitant]
  4. OMEPRAZOLE (OMEPROZALE) [Concomitant]
  5. HYDROXYUREA (HYDROXYCARBAMIDE) [Concomitant]
  6. SUDAFED (PSEUDOEPHEDRINE HYDROCHLORIDE) [Concomitant]
  7. LACTAID (TILACTASE) [Concomitant]

REACTIONS (1)
  - Myelodysplastic syndrome transformation [None]
